FAERS Safety Report 6208393-X (Version None)
Quarter: 2009Q2

REPORT INFORMATION
  Report Type: 
  Country: None (occurrence: None)
  Receive Date: 20090529
  Receipt Date: 20090521
  Transmission Date: 20091009
  Serious: Yes (Hospitalization, Other)
  Sender: FDA-Public Use
  Company Number: US-BIOGENIDEC-2009BI015555

PATIENT
  Age: 32 Year
  Sex: Female

DRUGS (2)
  1. AVONEX [Suspect]
     Indication: MULTIPLE SCLEROSIS
     Route: 030
     Dates: start: 19980101, end: 20030101
  2. AVONEX [Suspect]
     Route: 030
     Dates: start: 20030101

REACTIONS (10)
  - ABDOMINAL ADHESIONS [None]
  - BALANCE DISORDER [None]
  - CONTUSION [None]
  - GAIT DISTURBANCE [None]
  - INJECTION SITE PAIN [None]
  - MUSCLE ATROPHY [None]
  - MUSCULOSKELETAL STIFFNESS [None]
  - POOR VENOUS ACCESS [None]
  - PROCEDURAL COMPLICATION [None]
  - PYREXIA [None]
